FAERS Safety Report 8171839-4 (Version None)
Quarter: 2012Q1

REPORT INFORMATION
  Report Type: 
  Country: None (occurrence: None)
  Receive Date: 20120228
  Receipt Date: 20120221
  Transmission Date: 20120608
  Serious: Yes (Hospitalization)
  Sender: FDA-Public Use
  Company Number: US-PURDUE-USA-2012-0082700

PATIENT
  Sex: Female

DRUGS (1)
  1. BUTRANS [Suspect]
     Indication: PRODUCT USED FOR UNKNOWN INDICATION
     Dosage: 20 MCG, UNK

REACTIONS (6)
  - NAUSEA [None]
  - VOMITING [None]
  - HEADACHE [None]
  - DYSPNOEA [None]
  - CHEST DISCOMFORT [None]
  - PRURITUS [None]
